FAERS Safety Report 6629024-0 (Version None)
Quarter: 2010Q1

REPORT INFORMATION
  Report Type: 
  Country: None (occurrence: None)
  Receive Date: 20100311
  Receipt Date: 20090810
  Transmission Date: 20100710
  Serious: No
  Sender: FDA-Public Use
  Company Number: US-BIOGENIDEC-2009BI025258

PATIENT
  Age: 26 Year
  Sex: Male

DRUGS (1)
  1. AVONEX [Suspect]
     Indication: MULTIPLE SCLEROSIS
     Route: 030
     Dates: start: 20001210

REACTIONS (5)
  - BALANCE DISORDER [None]
  - DIPLOPIA [None]
  - FATIGUE [None]
  - PARAESTHESIA [None]
  - PERONEAL NERVE PALSY [None]
